FAERS Safety Report 17943044 (Version 1)
Quarter: 2020Q2

REPORT INFORMATION
  Report Type: Spontaneous
  Country: US (occurrence: US)
  Receive Date: 20200625
  Receipt Date: 20200625
  Transmission Date: 20200714
  Serious: Yes (Other)
  Sender: FDA-Public Use
  Company Number: None

PATIENT
  Age: 70 Year
  Sex: Female
  Weight: 64.8 kg

DRUGS (13)
  1. VITAMIN D [Concomitant]
     Active Substance: VITAMIN D NOS
  2. BENADRYL [Concomitant]
     Active Substance: DIPHENHYDRAMINE HYDROCHLORIDE
  3. VITAMIN C [Concomitant]
     Active Substance: ASCORBIC ACID
  4. KIRKLAND STOOL SOFTENERS [Concomitant]
  5. ASSURED EXTRA STRENGTH ACETAMINOPHEN [Suspect]
     Active Substance: ACETAMINOPHEN
     Indication: PAIN
     Dosage: ?          QUANTITY:1 CAPSULE(S);?
     Route: 048
     Dates: start: 20200625, end: 20200625
  6. LOSARTAN. [Concomitant]
     Active Substance: LOSARTAN
  7. NEW CHAPTER BONE STRENGTH [Concomitant]
  8. LEVOTHYROXINE. [Concomitant]
     Active Substance: LEVOTHYROXINE
  9. ALIVE ONCE DAILY [Concomitant]
  10. NATURE^S BOUNTY HAIR SKIN + NAILS [Concomitant]
  11. MELATONIN [Concomitant]
     Active Substance: MELATONIN
  12. DOCTOR^S BEST MSM [Concomitant]
  13. DOCTOR^S BEST [Concomitant]

REACTIONS (3)
  - Nausea [None]
  - Dizziness [None]
  - Hyperhidrosis [None]

NARRATIVE: CASE EVENT DATE: 20200625
